FAERS Safety Report 23084796 (Version 1)
Quarter: 2023Q4

REPORT INFORMATION
  Report Type: Spontaneous
  Country: JP (occurrence: JP)
  Receive Date: 20231019
  Receipt Date: 20231019
  Transmission Date: 20240110
  Serious: Yes (Other)
  Sender: FDA-Public Use
  Company Number: JP-PFIZER INC-PV202300171446

PATIENT
  Age: 15 Year
  Sex: Female

DRUGS (2)
  1. CIBINQO [Suspect]
     Active Substance: ABROCITINIB
     Indication: Dermatitis atopic
     Dosage: 100 MG
     Route: 048
     Dates: start: 20230829, end: 20230922
  2. BEPOTASTINE BESYLATE [Concomitant]
     Active Substance: BEPOTASTINE BESYLATE
     Indication: Pruritus
     Dosage: 10 MG
     Route: 048
     Dates: start: 202210

REACTIONS (1)
  - Depression [Unknown]

NARRATIVE: CASE EVENT DATE: 20230901
